FAERS Safety Report 18134006 (Version 1)
Quarter: 2020Q3

REPORT INFORMATION
  Report Type: Spontaneous
  Country: US (occurrence: US)
  Receive Date: 20200807
  Receipt Date: 20200807
  Transmission Date: 20201103
  Serious: Yes (Hospitalization)
  Sender: FDA-Public Use
  Company Number: None

PATIENT
  Age: 63 Year
  Sex: Female

DRUGS (21)
  1. HUMIRA [Suspect]
     Active Substance: ADALIMUMAB
     Indication: RHEUMATOID ARTHRITIS
     Dosage: ?          OTHER DOSE:1 PEN;OTHER FREQUENCY:Q14D;?
     Route: 058
     Dates: start: 20200523
  2. AZITHROMYCIN ANHYDROUS. [Concomitant]
     Active Substance: AZITHROMYCIN ANHYDROUS
  3. MECLIZINE [Concomitant]
     Active Substance: MECLIZINE HYDROCHLORIDE
  4. NITROFURANTIN [Concomitant]
     Active Substance: NITROFURANTOIN
  5. METRONIDAZOL [Concomitant]
     Active Substance: METRONIDAZOLE
  6. VALACYCLOVIR [Concomitant]
     Active Substance: VALACYCLOVIR HYDROCHLORIDE
  7. LISINOPRIL AND HYDROCHLOROTHIAZIDE [Concomitant]
     Active Substance: HYDROCHLOROTHIAZIDE\LISINOPRIL
  8. PREGABALIN. [Concomitant]
     Active Substance: PREGABALIN
  9. PREMARIN [Concomitant]
     Active Substance: ESTROGENS, CONJUGATED
  10. SPIRIVA [Concomitant]
     Active Substance: TIOTROPIUM BROMIDE MONOHYDRATE
  11. TIZANIDINE. [Concomitant]
     Active Substance: TIZANIDINE
  12. LISINOPRIL. [Concomitant]
     Active Substance: LISINOPRIL
  13. AMITRIPTLYN [Concomitant]
  14. DICLOFENAC [Concomitant]
     Active Substance: DICLOFENAC
  15. MELOXICAM. [Concomitant]
     Active Substance: MELOXICAM
  16. CYCLOBENZAPR [Concomitant]
     Active Substance: CYCLOBENZAPRINE
  17. BENZONATATE. [Concomitant]
     Active Substance: BENZONATATE
  18. CEFDINIR. [Concomitant]
     Active Substance: CEFDINIR
  19. LEVALBUTEROLAER [Concomitant]
  20. METHYLPRED [Concomitant]
     Active Substance: METHYLPREDNISOLONE
  21. TRAMADOL HCL [Concomitant]
     Active Substance: TRAMADOL HYDROCHLORIDE

REACTIONS (1)
  - Disease recurrence [None]

NARRATIVE: CASE EVENT DATE: 20200720
